FAERS Safety Report 7085867-3 (Version None)
Quarter: 2010Q4

REPORT INFORMATION
  Report Type: 
  Country: None (occurrence: None)
  Receive Date: 20101105
  Receipt Date: 20101030
  Transmission Date: 20110411
  Serious: Yes (Other)
  Sender: FDA-Public Use
  Company Number: GB-SANOFI-AVENTIS-2010SA066584

PATIENT
  Sex: Male

DRUGS (1)
  1. LANTUS [Suspect]
     Dates: start: 20070301

REACTIONS (1)
  - THROAT CANCER [None]
